FAERS Safety Report 7346975-2 (Version None)
Quarter: 2011Q1

REPORT INFORMATION
  Report Type: 
  Country: None (occurrence: None)
  Receive Date: 20110311
  Receipt Date: 20110225
  Transmission Date: 20110831
  Serious: Yes (Other)
  Sender: FDA-Public Use
  Company Number: PHHY2010BR65328

PATIENT
  Sex: Male

DRUGS (3)
  1. MAXIDEX [Concomitant]
     Dosage: 1 DF, Q4H
  2. DIOVAN [Suspect]
     Indication: HYPERTENSION
     Dosage: ONE TABLET (80 MG) A DAY.
     Route: 048
  3. VIGADEXA [Concomitant]
     Dosage: 1 DF, Q4H

REACTIONS (1)
  - BLOOD PRESSURE INCREASED [None]
